FAERS Safety Report 7312377-8 (Version None)
Quarter: 2011Q1

REPORT INFORMATION
  Report Type: 
  Country: None (occurrence: None)
  Receive Date: 20110224
  Receipt Date: 20110215
  Transmission Date: 20110831
  Serious: Yes (Other)
  Sender: FDA-Public Use
  Company Number: NL-JNJFOC-20110204930

PATIENT
  Sex: Female

DRUGS (3)
  1. REMICADE [Suspect]
     Indication: COLITIS ULCERATIVE
     Route: 042
  2. PURINETHOL [Suspect]
     Indication: ARTHRALGIA
  3. PURINETHOL [Suspect]
     Indication: MYALGIA

REACTIONS (4)
  - INFUSION RELATED REACTION [None]
  - ARTHRALGIA [None]
  - SYSTEMIC LUPUS ERYTHEMATOSUS [None]
  - MYALGIA [None]
